FAERS Safety Report 4548726-3 (Version None)
Quarter: 2005Q1

REPORT INFORMATION
  Report Type: 
  Country: None (occurrence: None)
  Receive Date: 20050106
  Receipt Date: 20041220
  Transmission Date: 20050727
  Serious: Yes (Hospitalization, Other)
  Sender: FDA-Public Use
  Company Number: USA040876508

PATIENT
  Age: 81 Year
  Sex: Male
  Weight: 52 kg

DRUGS (7)
  1. FORTEO [Suspect]
     Indication: OSTEOPOROSIS
     Dosage: 20 UG/1 DAY
     Dates: start: 20040808
  2. FOSAMAX [Concomitant]
  3. BLOOD PRESSURE MEDICATION [Concomitant]
  4. COUMADIN [Concomitant]
  5. ACETYLSALICYLIC ACID SRT [Concomitant]
  6. PAIN KILLERS [Concomitant]
  7. MUSCLE RELAXANTS [Concomitant]

REACTIONS (6)
  - BACK PAIN [None]
  - DRUG INEFFECTIVE [None]
  - INJECTION SITE PAIN [None]
  - METASTASES TO BONE [None]
  - PHARMACEUTICAL PRODUCT COMPLAINT [None]
  - PROSTATE CANCER METASTATIC [None]
